FAERS Safety Report 8819071 (Version 1)
Quarter: 2012Q4

REPORT INFORMATION
  Report Type: Report from Study
  Country: CA (occurrence: CA)
  Receive Date: 20121001
  Receipt Date: 20121001
  Transmission Date: 20130627
  Serious: Yes (Other)
  Sender: FDA-Public Use
  Company Number: CA-JNJFOC-20120910321

PATIENT
  Age: 58 Year
  Sex: Male
  Weight: 101 kg

DRUGS (4)
  1. REMICADE [Suspect]
     Indication: CROHN^S DISEASE
     Route: 042
     Dates: start: 20040501
  2. IMURAN [Concomitant]
     Route: 065
  3. NEXIUM [Concomitant]
     Dosage: as necessary
     Route: 065
  4. ELAVIL [Concomitant]
     Route: 065

REACTIONS (1)
  - Dental operation [Not Recovered/Not Resolved]
